FAERS Safety Report 16897472 (Version 2)
Quarter: 2019Q4

REPORT INFORMATION
  Report Type: Report from Study
  Country: None (occurrence: US)
  Receive Date: 20191009
  Receipt Date: 20191029
  Transmission Date: 20200122
  Serious: Yes (Hospitalization, Other)
  Sender: FDA-Public Use
  Company Number: US-ABBVIE-19K-163-2950177-00

PATIENT
  Age: 69 Year
  Sex: Male
  Weight: 94.43 kg

DRUGS (8)
  1. VENCLEXTA [Suspect]
     Active Substance: VENETOCLAX
     Route: 048
     Dates: start: 2019, end: 2019
  2. VENCLEXTA [Suspect]
     Active Substance: VENETOCLAX
     Indication: PLASMA CELL MYELOMA
     Route: 048
     Dates: start: 2019, end: 2019
  3. VENCLEXTA [Suspect]
     Active Substance: VENETOCLAX
     Route: 048
     Dates: start: 20190813, end: 20190819
  4. VENCLEXTA [Suspect]
     Active Substance: VENETOCLAX
     Route: 048
     Dates: start: 2019, end: 2019
  5. VENCLEXTA [Suspect]
     Active Substance: VENETOCLAX
     Route: 048
     Dates: start: 20190820, end: 20190826
  6. VENCLEXTA [Suspect]
     Active Substance: VENETOCLAX
     Route: 048
     Dates: start: 20190827, end: 20190902
  7. VENCLEXTA [Suspect]
     Active Substance: VENETOCLAX
     Route: 048
     Dates: start: 20190902
  8. VENCLEXTA [Suspect]
     Active Substance: VENETOCLAX
     Route: 048
     Dates: start: 2019, end: 20190702

REACTIONS (8)
  - Coma [Unknown]
  - Feeling cold [Recovered/Resolved]
  - Endotracheal intubation complication [Not Recovered/Not Resolved]
  - Off label use [Unknown]
  - Tooth fracture [Not Recovered/Not Resolved]
  - Loss of consciousness [Recovered/Resolved]
  - Arthropod bite [Unknown]
  - West Nile viral infection [Recovered/Resolved]

NARRATIVE: CASE EVENT DATE: 2019
